FAERS Safety Report 11855641 (Version 2)
Quarter: 2017Q1

REPORT INFORMATION
  Report Type: Report from Study
  Country: FR (occurrence: FR)
  Receive Date: 20151221
  Receipt Date: 20170109
  Transmission Date: 20170428
  Serious: Yes (Hospitalization)
  Sender: FDA-Public Use
  Company Number: FR-SA-2015SA209628

PATIENT
  Age: 59 Year
  Sex: Male
  Weight: 95.9 kg

DRUGS (11)
  1. 5-FU [Suspect]
     Active Substance: FLUOROURACIL
     Indication: COLORECTAL CANCER METASTATIC
     Route: 041
     Dates: start: 20150622
  2. 5-FU [Suspect]
     Active Substance: FLUOROURACIL
     Indication: COLORECTAL CANCER METASTATIC
     Route: 040
     Dates: start: 20150831, end: 20150831
  3. OMEPRAZOLE. [Concomitant]
     Active Substance: OMEPRAZOLE
     Route: 065
     Dates: start: 20150914
  4. 5-FU [Suspect]
     Active Substance: FLUOROURACIL
     Indication: COLORECTAL CANCER METASTATIC
     Route: 041
     Dates: start: 20150831
  5. IRINOTECAN [Suspect]
     Active Substance: IRINOTECAN
     Indication: COLORECTAL CANCER METASTATIC
     Route: 041
     Dates: start: 20150622, end: 20150622
  6. LEUCOVORIN. [Suspect]
     Active Substance: LEUCOVORIN
     Indication: COLORECTAL CANCER METASTATIC
     Route: 041
     Dates: start: 20150622, end: 20150622
  7. AFLIBERCEPT [Suspect]
     Active Substance: AFLIBERCEPT
     Indication: COLORECTAL CANCER METASTATIC
     Route: 041
     Dates: start: 20150622, end: 20150622
  8. LOPERAMIDE [Concomitant]
     Active Substance: LOPERAMIDE
     Route: 065
     Dates: start: 201506
  9. SODIUM BICARBONATE. [Concomitant]
     Active Substance: SODIUM BICARBONATE
     Route: 065
     Dates: start: 20150914
  10. LEUCOVORIN. [Suspect]
     Active Substance: LEUCOVORIN
     Indication: COLORECTAL CANCER METASTATIC
     Route: 041
     Dates: start: 20150831, end: 20150831
  11. 5-FU [Suspect]
     Active Substance: FLUOROURACIL
     Indication: COLORECTAL CANCER METASTATIC
     Route: 040
     Dates: start: 20150622, end: 20150622

REACTIONS (2)
  - Coronary artery stenosis [Recovered/Resolved]
  - Oesophageal pain [Recovered/Resolved]

NARRATIVE: CASE EVENT DATE: 20150901
